FAERS Safety Report 9927806 (Version 1)
Quarter: 2014Q1

REPORT INFORMATION
  Report Type: Report from Study
  Country: US (occurrence: US)
  Receive Date: 20140227
  Receipt Date: 20140227
  Transmission Date: 20141002
  Serious: Yes (Death)
  Sender: FDA-Public Use
  Company Number: US-ROCHE-1353700

PATIENT
  Age: 58 Year
  Sex: Male

DRUGS (6)
  1. XELODA [Suspect]
     Indication: COLORECTAL CANCER
     Route: 065
     Dates: start: 20120911, end: 20130514
  2. VICODIN [Concomitant]
  3. ATIVAN [Concomitant]
  4. DIFLUCAN [Concomitant]
  5. MIRALAX [Concomitant]
  6. SENNA-S [Concomitant]

REACTIONS (4)
  - Death [Fatal]
  - Pleural effusion [Unknown]
  - Candida infection [Unknown]
  - Dysphagia [Unknown]
